FAERS Safety Report 24530068 (Version 2)
Quarter: 2025Q1

REPORT INFORMATION
  Report Type: Spontaneous
  Country: FR (occurrence: FR)
  Receive Date: 20241021
  Receipt Date: 20250107
  Transmission Date: 20250408
  Serious: Yes (Life-Threatening, Hospitalization)
  Sender: PFIZER
  Company Number: None

PATIENT
  Age: 31 Year
  Sex: Female
  Weight: 80 kg

DRUGS (4)
  1. ROCURONIUM BROMIDE [Suspect]
     Active Substance: ROCURONIUM BROMIDE
     Indication: Laparoscopy
     Route: 042
     Dates: start: 20240522, end: 20240522
  2. PROPOFOL [Concomitant]
     Active Substance: PROPOFOL
     Indication: Laparoscopy
     Route: 042
     Dates: start: 20240522, end: 20240522
  3. REMIFENTANIL HYDROCHLORIDE [Concomitant]
     Active Substance: REMIFENTANIL HYDROCHLORIDE
     Indication: Laparoscopy
     Route: 042
     Dates: start: 20240522, end: 20240522
  4. DEXAMETHASONE [Concomitant]
     Active Substance: DEXAMETHASONE
     Indication: Laparoscopy
     Route: 042
     Dates: start: 20240522, end: 20240522

REACTIONS (1)
  - Anaphylactic shock [Recovered/Resolved]

NARRATIVE: CASE EVENT DATE: 20240522
